FAERS Safety Report 7550742-4 (Version None)
Quarter: 2011Q2

REPORT INFORMATION
  Report Type: 
  Country: None (occurrence: None)
  Receive Date: 20110616
  Receipt Date: 20110601
  Transmission Date: 20111010
  Serious: Yes (Other)
  Sender: FDA-Public Use
  Company Number: ES-RANBAXY-2011RR-45327

PATIENT

DRUGS (5)
  1. FLUCONAZOLE [Suspect]
     Indication: PROPHYLAXIS
  2. LEVOFLOXACIN [Suspect]
     Indication: PROPHYLAXIS
  3. PIPERACILLIN AND TAZOBACTAM [Suspect]
     Indication: NEUTROPHIL COUNT DECREASED
  4. CYCLOPHOSPHAMIDE [Suspect]
     Indication: CROHN'S DISEASE
     Dosage: 2 G/M^2
     Route: 065
  5. FILGRASTIM [Suspect]
     Indication: CROHN'S DISEASE
     Dosage: 10 MG/KG, UNK
     Route: 065

REACTIONS (2)
  - BACTERAEMIA [None]
  - RENAL FAILURE [None]
